FAERS Safety Report 7139332-5 (Version None)
Quarter: 2010Q4

REPORT INFORMATION
  Report Type: 
  Country: None (occurrence: None)
  Receive Date: 20101206
  Receipt Date: 20101122
  Transmission Date: 20110411
  Serious: Yes (Life-Threatening)
  Sender: FDA-Public Use
  Company Number: KW-MYLANLABS-2010S1021570

PATIENT
  Age: 8 Year
  Sex: Male

DRUGS (3)
  1. CISPLATIN [Suspect]
     Indication: BONE SARCOMA
     Route: 065
  2. DOXORUBICIN HCL [Suspect]
     Indication: BONE SARCOMA
     Route: 065
  3. METHOTREXATE [Suspect]
     Indication: BONE SARCOMA
     Dosage: HIGH-DOSE METHOTREXATE (TOTAL DOSE 144 G/M2)
     Route: 065

REACTIONS (1)
  - ACUTE MYELOID LEUKAEMIA [None]
